FAERS Safety Report 14182663 (Version 1)
Quarter: 2017Q4

REPORT INFORMATION
  Report Type: Report from Study
  Country: CO (occurrence: CO)
  Receive Date: 20171113
  Receipt Date: 20171113
  Transmission Date: 20180321
  Serious: Yes (Life-Threatening, Other)
  Sender: FDA-Public Use
  Company Number: CO-ROCHE-2020965

PATIENT
  Age: 38 Year
  Sex: Female
  Weight: 80 kg

DRUGS (1)
  1. XOLAIR [Suspect]
     Active Substance: OMALIZUMAB
     Indication: ASTHMA
     Route: 058
     Dates: start: 20130101, end: 20161102

REACTIONS (5)
  - Apparent death [Unknown]
  - Apnoea [Unknown]
  - Dizziness [Unknown]
  - Feeling abnormal [Unknown]
  - Syncope [Unknown]

NARRATIVE: CASE EVENT DATE: 20130101
